FAERS Safety Report 13413629 (Version 3)
Quarter: 2019Q4

REPORT INFORMATION
  Report Type: Spontaneous
  Country: US (occurrence: US)
  Receive Date: 20170406
  Receipt Date: 20191018
  Transmission Date: 20200122
  Serious: No
  Sender: FDA-Public Use
  Company Number: US-JNJFOC-20170318275

PATIENT
  Sex: Male

DRUGS (15)
  1. INVEGA [Suspect]
     Active Substance: PALIPERIDONE
     Dosage: VARYING DOSES OF 03 MG, 06 MG, 09 MG AND 12 MG VARYING FREQUENCIES (UNSPECIFIED FREQUENCY AND QD)
     Route: 048
     Dates: start: 20100525, end: 20100610
  2. RISPERDAL [Suspect]
     Active Substance: RISPERIDONE
     Route: 048
     Dates: start: 20121210
  3. RISPERDAL [Suspect]
     Active Substance: RISPERIDONE
     Dosage: VARYING DOSES INCLUDED UNSPECIFIED DOSE 01 MG AND 03 MG AND VARYING FREQUENCIES (UNSPECIFIED/BID)
     Route: 048
     Dates: start: 20121224, end: 20150618
  4. RISPERDAL [Suspect]
     Active Substance: RISPERIDONE
     Dosage: VARYING DOSES OF UNSPECIFIED AND 03 MG AND VARYING FREQUENCIES (UNSPECIFIED/01 MG QAM AND 02MG QHS)
     Route: 048
     Dates: start: 20121209, end: 20121221
  5. RISPERDAL [Suspect]
     Active Substance: RISPERIDONE
     Route: 048
     Dates: start: 20130305
  6. INVEGA SUSTENNA [Suspect]
     Active Substance: PALIPERIDONE PALMITATE
     Indication: SCHIZOPHRENIA
     Dosage: VARYING DOSES OF UNSPECIFIED DOSE, 117 MG, 156 MG AND 234 MG
     Route: 030
     Dates: start: 20100611, end: 20120409
  7. RISPERDAL [Suspect]
     Active Substance: RISPERIDONE
     Dosage: VARYING DOSES INCLUDED UNSPECIFIED DOSE AND 01 MG
     Route: 048
     Dates: start: 20120406, end: 20120407
  8. RISPERDAL [Suspect]
     Active Substance: RISPERIDONE
     Indication: SCHIZOPHRENIA
     Dosage: VARYING FREQUENCIES (UNSPECIFIED FREQUENCY AND TWICE A DAY)
     Route: 048
     Dates: start: 20090312, end: 20090319
  9. INVEGA [Suspect]
     Active Substance: PALIPERIDONE
     Route: 048
     Dates: start: 20100616, end: 20100809
  10. RISPERDAL [Suspect]
     Active Substance: RISPERIDONE
     Route: 048
     Dates: start: 20121224, end: 20131016
  11. INVEGA [Suspect]
     Active Substance: PALIPERIDONE
     Route: 048
     Dates: start: 20120406
  12. RISPERDAL [Suspect]
     Active Substance: RISPERIDONE
     Indication: SCHIZOPHRENIA
     Route: 048
     Dates: start: 20090312, end: 20090319
  13. RISPERDAL [Suspect]
     Active Substance: RISPERIDONE
     Route: 048
     Dates: start: 20120406
  14. INVEGA [Suspect]
     Active Substance: PALIPERIDONE
     Indication: SCHIZOPHRENIA
     Route: 048
     Dates: start: 20090312, end: 20090319
  15. RISPERDAL M-TAB [Suspect]
     Active Substance: RISPERIDONE
     Indication: PRODUCT USED FOR UNKNOWN INDICATION
     Route: 048

REACTIONS (2)
  - Emotional distress [Unknown]
  - Gynaecomastia [Unknown]
